FAERS Safety Report 6356581-4 (Version None)
Quarter: 2009Q3

REPORT INFORMATION
  Report Type: 
  Country: None (occurrence: None)
  Receive Date: 20090915
  Receipt Date: 20090903
  Transmission Date: 20100115
  Serious: Yes (Other)
  Sender: FDA-Public Use
  Company Number: CR-WYE-H10934309

PATIENT
  Sex: Female

DRUGS (1)
  1. PANTECTA [Suspect]
     Dosage: 40 MG, FREQUENCY UNKNOWN
     Route: 048

REACTIONS (1)
  - LYMPHOMA [None]
